FAERS Safety Report 8432055-1 (Version None)
Quarter: 2012Q2

REPORT INFORMATION
  Report Type: 
  Country: None (occurrence: None)
  Receive Date: 20120613
  Receipt Date: 20120607
  Transmission Date: 20120825
  Serious: Yes (Death, Life-Threatening, Hospitalization, Other)
  Sender: FDA-Public Use
  Company Number: GB-BAYER-201031384GPV

PATIENT
  Age: 68 Year
  Sex: Female
  Weight: 55.7 kg

DRUGS (8)
  1. ACETAMINOPHEN [Concomitant]
     Indication: PAIN
     Dosage: UNK
     Dates: start: 20100101
  2. LOPERAMIDE [Concomitant]
     Indication: DIARRHOEA
     Dosage: 1 MG, UNK
     Dates: start: 20100627, end: 20100627
  3. SORAFENIB [Suspect]
     Indication: HEPATIC NEOPLASM MALIGNANT
     Dosage: CYCLE 1
     Route: 048
     Dates: start: 20100624, end: 20100701
  4. LEVOTHYROXINE SODIUM [Concomitant]
     Indication: HYPOTHYROIDISM
     Dosage: UNK
  5. CYCLIZINE [Concomitant]
     Indication: NAUSEA
     Dosage: UNK
     Dates: start: 20100101
  6. ERLOTINIB HYDROCHLORIDE [Suspect]
     Indication: HEPATIC NEOPLASM MALIGNANT
     Dosage: CYCLE 1
     Route: 048
     Dates: start: 20100624, end: 20100701
  7. CIPROFLOXACIN [Concomitant]
     Indication: BODY TEMPERATURE INCREASED
     Dosage: UNK
     Dates: start: 20100601, end: 20100617
  8. HALOPERIDOL [Concomitant]
     Indication: PROPHYLAXIS
     Dosage: UNK
     Dates: start: 20100101

REACTIONS (8)
  - CLOSTRIDIAL INFECTION [None]
  - ASCITES [None]
  - OEDEMA PERIPHERAL [None]
  - PYREXIA [None]
  - MALAISE [None]
  - SEPSIS [None]
  - GENERAL PHYSICAL HEALTH DETERIORATION [None]
  - DEHYDRATION [None]
